FAERS Safety Report 6226856-8 (Version None)
Quarter: 2009Q2

REPORT INFORMATION
  Report Type: 
  Country: None (occurrence: None)
  Receive Date: 20090612
  Receipt Date: 20090522
  Transmission Date: 20091009
  Serious: No
  Sender: FDA-Public Use
  Company Number: US-ABBOTT-09P-163-0575518-00

PATIENT
  Sex: Male
  Weight: 117.13 kg

DRUGS (10)
  1. HUMIRA [Suspect]
     Indication: DIVERTICULITIS
     Route: 058
     Dates: start: 20090213
  2. HUMIRA [Suspect]
     Indication: COLITIS ULCERATIVE
  3. HUMIRA [Suspect]
     Indication: IRRITABLE BOWEL SYNDROME
  4. ASACOL [Concomitant]
     Indication: DRUG USE FOR UNKNOWN INDICATION
     Route: 048
  5. NEXIUM [Concomitant]
     Indication: GASTRIC DISORDER
  6. M.V.I. [Concomitant]
     Indication: DRUG USE FOR UNKNOWN INDICATION
  7. DILAUDID [Concomitant]
     Indication: PAIN
     Dosage: 1-2 TAB PRN
  8. PROZAC [Concomitant]
     Indication: DRUG USE FOR UNKNOWN INDICATION
  9. XANAX [Concomitant]
     Indication: ANXIOLYTIC THERAPY
  10. BENTYL [Concomitant]
     Indication: DRUG USE FOR UNKNOWN INDICATION
     Dosage: PRN

REACTIONS (3)
  - ABDOMINAL PAIN UPPER [None]
  - DRUG EFFECT DECREASED [None]
  - HAEMATOCHEZIA [None]
